FAERS Safety Report 9502719 (Version 2)
Quarter: 2014Q1

REPORT INFORMATION
  Report Type: Spontaneous
  Country: US (occurrence: None)
  Receive Date: 20130225
  Receipt Date: 20140225
  Transmission Date: 20141002
  Serious: Yes (Other)
  Sender: FDA-Public Use
  Company Number: 2012-163

PATIENT
  Age: 50 Year
  Sex: Female

DRUGS (5)
  1. PRIALT (ZICONOTIDE) INTRATHECAL INFUSION [Suspect]
     Indication: COMPLEX REGIONAL PAIN SYNDROME
     Route: 037
     Dates: start: 2008
  2. PRIALT (ZICONOTIDE) INTRATHECAL INFUSION [Suspect]
     Indication: PAIN
     Route: 037
     Dates: start: 2008
  3. DILAUDID (HYDROMORPHONE HYDROCHLORIDE) INJECTION [Suspect]
     Indication: COMPLEX REGIONAL PAIN SYNDROME
     Dosage: 0.038 MG, ONCE/HOUR, INTRATHECAL
     Route: 037
     Dates: start: 2008
  4. DILAUDID (HYDROMORPHONE HYDROCHLORIDE) INJECTION [Suspect]
     Indication: PAIN
     Dosage: 0.038 MG, ONCE/HOUR, INTRATHECAL
     Route: 037
     Dates: start: 2008
  5. DILAUDID (HYDROMORPHONE HYDROCHLORIDE) [Concomitant]

REACTIONS (6)
  - Somnolence [None]
  - Pain [None]
  - Nausea [None]
  - Tremor [None]
  - Drug ineffective [None]
  - Overdose [None]
